FAERS Safety Report 7132388-5 (Version None)
Quarter: 2010Q4

REPORT INFORMATION
  Report Type: 
  Country: None (occurrence: None)
  Receive Date: 20101129
  Receipt Date: 20101129
  Transmission Date: 20110411
  Serious: Yes (Hospitalization)
  Sender: FDA-Public Use
  Company Number: None

PATIENT
  Sex: Female
  Weight: 56 kg

DRUGS (2)
  1. CISPLATIN [Suspect]
     Dosage: 39 MG
  2. ERBITUX [Suspect]
     Dosage: 310 MG

REACTIONS (2)
  - DIARRHOEA [None]
  - URINARY TRACT INFECTION [None]
